FAERS Safety Report 9891723 (Version 3)
Quarter: 2014Q1

REPORT INFORMATION
  Report Type: Spontaneous
  Country: DE (occurrence: DE)
  Receive Date: 20140212
  Receipt Date: 20140219
  Transmission Date: 20141002
  Serious: Yes (Hospitalization)
  Sender: FDA-Public Use
  Company Number: PHHY2012DE107682

PATIENT
  Age: 44 Year
  Sex: Female

DRUGS (1)
  1. GILENYA [Suspect]
     Indication: RELAPSING-REMITTING MULTIPLE SCLEROSIS
     Dosage: 0.5 MG, UNK
     Route: 048
     Dates: start: 201208, end: 201209

REACTIONS (11)
  - Grand mal convulsion [Recovering/Resolving]
  - Pleocytosis [Recovering/Resolving]
  - Mental disorder due to a general medical condition [Recovering/Resolving]
  - Multiple sclerosis relapse [Recovering/Resolving]
  - Nuclear magnetic resonance imaging abnormal [Recovering/Resolving]
  - Gait disturbance [Recovering/Resolving]
  - Disturbance in attention [Recovering/Resolving]
  - Blood immunoglobulin G increased [Recovering/Resolving]
  - Aphasia [Recovering/Resolving]
  - Central nervous system lesion [Unknown]
  - CSF oligoclonal band present [Unknown]
